FAERS Safety Report 5587212-9 (Version None)
Quarter: 2008Q1

REPORT INFORMATION
  Report Type: 
  Country: None (occurrence: None)
  Receive Date: 20080110
  Receipt Date: 20070508
  Transmission Date: 20080703
  Serious: No
  Sender: FDA-Public Use
  Company Number: US-BRISTOL-MYERS SQUIBB COMPANY-13772785

PATIENT
  Age: 30 Year
  Sex: Female
  Weight: 69 kg

DRUGS (9)
  1. CARDIOLITE [Suspect]
     Indication: CARDIAC STRESS TEST
     Dates: start: 20070508, end: 20070508
  2. MAALOX [Concomitant]
  3. ZOFRAN [Concomitant]
  4. ONDANSETRON [Concomitant]
  5. ENOXAPARIN SODIUM [Concomitant]
  6. FAMOTIDINE [Concomitant]
  7. PROMETHAZINE [Concomitant]
  8. ALPRAZOLAM [Concomitant]
  9. TYLENOL [Concomitant]

REACTIONS (3)
  - CHEST PAIN [None]
  - NAUSEA [None]
  - TACHYCARDIA [None]
